FAERS Safety Report 4620469-7 (Version None)
Quarter: 2005Q1

REPORT INFORMATION
  Report Type: 
  Country: None (occurrence: None)
  Receive Date: 20050324
  Receipt Date: 20050315
  Transmission Date: 20050727
  Serious: Yes (Other)
  Sender: FDA-Public Use
  Company Number: 2004085427

PATIENT
  Age: 77 Year
  Sex: Male
  Weight: 85.2762 kg

DRUGS (7)
  1. TIKOSYN [Suspect]
     Indication: ATRIAL FIBRILLATION
     Dosage: 500 MCG (250 MCG, 2 IN 1 D), ORAL; SEE IMAGE
     Route: 048
     Dates: start: 20050305, end: 20050307
  2. TIKOSYN [Suspect]
     Indication: ATRIAL FIBRILLATION
     Dosage: 500 MCG (250 MCG, 2 IN 1 D), ORAL; SEE IMAGE
     Route: 048
     Dates: start: 20040831
  3. ALL OTHER THERAPEUTIC PRODUCTS (ALL OTHER THERAPEUTIC PRODUCTS) [Concomitant]
  4. FELODIPINE [Concomitant]
  5. WARFARIN SODIUM [Concomitant]
  6. LISINOPRIL [Concomitant]
  7. TOPROL (METOPROLOL) [Concomitant]

REACTIONS (7)
  - ATRIAL FIBRILLATION [None]
  - CARDIAC FAILURE CONGESTIVE [None]
  - CARDIAC VALVE DISEASE [None]
  - HEART RATE DECREASED [None]
  - MIGRAINE [None]
  - PALPITATIONS [None]
  - VISUAL DISTURBANCE [None]
